FAERS Safety Report 4584731-9 (Version None)
Quarter: 2005Q1

REPORT INFORMATION
  Report Type: 
  Country: None (occurrence: None)
  Receive Date: 20050214
  Receipt Date: 20040913
  Transmission Date: 20050727
  Serious: Yes (Hospitalization)
  Sender: FDA-Public Use
  Company Number: 05-044

PATIENT
  Sex: Female

DRUGS (3)
  1. DEXAMETHASONE [Suspect]
     Indication: MULTIPLE MYELOMA
     Dosage: 40 MG/DAY
     Dates: start: 20030327, end: 20030720
  2. GENASENSE [Concomitant]
  3. VELCADE [Concomitant]

REACTIONS (2)
  - DIARRHOEA [None]
  - DISEASE PROGRESSION [None]
